FAERS Safety Report 7936094-6 (Version None)
Quarter: 2011Q4

REPORT INFORMATION
  Report Type: 
  Country: None (occurrence: None)
  Receive Date: 20111123
  Receipt Date: 20111114
  Transmission Date: 20120403
  Serious: Yes (Hospitalization)
  Sender: FDA-Public Use
  Company Number: DE-AMGEN-DEUNI2011040947

PATIENT
  Age: 76 Year
  Sex: Male

DRUGS (12)
  1. LORAZEPAM [Concomitant]
  2. TAZOBACTAM [Concomitant]
  3. PANITUMUMAB [Suspect]
     Indication: COLORECTAL CANCER
     Dosage: 470 MG, Q2WK
     Route: 042
     Dates: start: 20100615, end: 20100824
  4. ASPIRIN [Concomitant]
  5. PLAVIX [Concomitant]
  6. BISOPROLOL FUMARATE [Concomitant]
  7. ENALAPRIL MALEATE [Concomitant]
  8. TORSEMIDE [Concomitant]
     Indication: OEDEMA
     Dosage: 5 MG, UNK
     Route: 048
     Dates: start: 20100615, end: 20100624
  9. TAMSULOSIN HCL [Concomitant]
  10. PANTOPRAZOLE SODIUM [Concomitant]
  11. ROZEX [Concomitant]
     Indication: DERMATITIS
     Dosage: UNK
     Route: 061
     Dates: end: 20100624
  12. EUNERPAN [Concomitant]

REACTIONS (2)
  - PYREXIA [None]
  - INFECTION [None]
